FAERS Safety Report 10585040 (Version 1)
Quarter: 2014Q4

REPORT INFORMATION
  Report Type: Spontaneous
  Country: US (occurrence: None)
  Receive Date: 20141113
  Receipt Date: 20141113
  Transmission Date: 20150529
  Serious: Yes (Hospitalization)
  Sender: FDA-Public Use
  Company Number: QSC-2014-0843

PATIENT
  Age: 69 Year
  Sex: Male

DRUGS (1)
  1. H.P. ACTHAR [Suspect]
     Active Substance: CORTICOTROPIN
     Indication: NEPHROTIC SYNDROME
     Dosage: 80 UNITS, BIW SUBCUTANEOUS
     Route: 058
     Dates: start: 20140530

REACTIONS (4)
  - Dyspnoea [None]
  - Fluid overload [None]
  - Swelling [None]
  - Hypertension [None]

NARRATIVE: CASE EVENT DATE: 2014
